FAERS Safety Report 25184667 (Version 1)
Quarter: 2025Q2

REPORT INFORMATION
  Report Type: Spontaneous
  Country: FR (occurrence: FR)
  Receive Date: 20250410
  Receipt Date: 20250410
  Transmission Date: 20250717
  Serious: Yes (Life-Threatening)
  Sender: DR REDDYS
  Company Number: None

PATIENT
  Age: 67 Year
  Sex: Male
  Weight: 118 kg

DRUGS (9)
  1. DOXORUBICIN HYDROCHLORIDE [Suspect]
     Active Substance: DOXORUBICIN HYDROCHLORIDE
     Indication: Myxoid liposarcoma
     Route: 042
     Dates: start: 20241001
  2. DOXORUBICIN HYDROCHLORIDE [Suspect]
     Active Substance: DOXORUBICIN HYDROCHLORIDE
     Route: 042
     Dates: start: 20241021
  3. IFOSFAMIDE [Suspect]
     Active Substance: IFOSFAMIDE
     Indication: Myxoid liposarcoma
     Route: 042
     Dates: start: 20241001, end: 20241003
  4. IFOSFAMIDE [Suspect]
     Active Substance: IFOSFAMIDE
     Route: 042
     Dates: start: 20241021, end: 20241023
  5. ACEBUTOLOL HYDROCHLORIDE [Concomitant]
     Active Substance: ACEBUTOLOL HYDROCHLORIDE
     Indication: Product used for unknown indication
  6. ATACAND [Concomitant]
     Active Substance: CANDESARTAN CILEXETIL
     Indication: Product used for unknown indication
  7. KARDEGIC [Concomitant]
     Active Substance: ASPIRIN DL-LYSINE
     Indication: Product used for unknown indication
  8. METFORMIN HYDROCHLORIDE [Concomitant]
     Active Substance: METFORMIN HYDROCHLORIDE
     Indication: Product used for unknown indication
  9. DAPAGLIFLOZIN [Concomitant]
     Active Substance: DAPAGLIFLOZIN
     Indication: Product used for unknown indication

REACTIONS (2)
  - Tubulointerstitial nephritis [Recovered/Resolved with Sequelae]
  - Pancytopenia [Recovering/Resolving]

NARRATIVE: CASE EVENT DATE: 20241031
